FAERS Safety Report 18336363 (Version 1)
Quarter: 2020Q4

REPORT INFORMATION
  Report Type: Report from Study
  Country: US (occurrence: US)
  Receive Date: 20201001
  Receipt Date: 20201001
  Transmission Date: 20210113
  Serious: Yes (Other)
  Sender: FDA-Public Use
  Company Number: US-EISAI MEDICAL RESEARCH-EC-2020-078540

PATIENT
  Age: 77 Year
  Sex: Male

DRUGS (5)
  1. TRIAMETERENE/HYDROCHLOROTHIAZIDE [Suspect]
     Active Substance: HYDROCHLOROTHIAZIDE\TRIAMTERENE
     Indication: HYPERTENSION
     Dosage: FREQUENCY, DOSE, ROUTE NOT PROVIDED.
  2. OLMESARTAN [Suspect]
     Active Substance: OLMESARTAN
     Indication: HYPERTENSION
     Dosage: FREQUENCY, DOSE, ROUTE NOT PROVIDED.
  3. AMLODIPINE [Suspect]
     Active Substance: AMLODIPINE BESYLATE
     Indication: HYPERTENSION
     Dosage: FREQUENCY, DOSE, ROUTE NOT PROVIDED.
  4. LENVIMA [Suspect]
     Active Substance: LENVATINIB
     Route: 048
     Dates: start: 20200806, end: 20200922
  5. LENVIMA [Suspect]
     Active Substance: LENVATINIB
     Indication: THYROID CANCER
     Route: 048
     Dates: start: 20200801, end: 20200803

REACTIONS (10)
  - Atrial fibrillation [Not Recovered/Not Resolved]
  - Extrasystoles [Not Recovered/Not Resolved]
  - Thyroglobulin decreased [Not Recovered/Not Resolved]
  - Cold sweat [Unknown]
  - Cardiac dysfunction [Not Recovered/Not Resolved]
  - Oedema peripheral [Not Recovered/Not Resolved]
  - Impaired healing [Not Recovered/Not Resolved]
  - Nausea [Unknown]
  - Hypertension [Recovering/Resolving]
  - Dizziness [Unknown]

NARRATIVE: CASE EVENT DATE: 202008
